FAERS Safety Report 7114323-9 (Version None)
Quarter: 2010Q4

REPORT INFORMATION
  Report Type: 
  Country: None (occurrence: None)
  Receive Date: 20101119
  Receipt Date: 20101117
  Transmission Date: 20110411
  Serious: Yes (Hospitalization)
  Sender: FDA-Public Use
  Company Number: DE-ABBOTT-10P-062-0686198-00

PATIENT
  Age: 69 Year
  Sex: Male

DRUGS (16)
  1. ERGENYL TABLETS [Suspect]
     Indication: BIPOLAR I DISORDER
     Route: 048
     Dates: start: 20090812, end: 20090816
  2. ERGENYL TABLETS [Suspect]
     Route: 048
     Dates: start: 20090817, end: 20100503
  3. ERGENYL TABLETS [Suspect]
     Dosage: TITRATED DOWN 1200 MG TO 900 MG DAILY
     Route: 048
     Dates: start: 20100504, end: 20100607
  4. ERGENYL TABLETS [Suspect]
     Route: 048
     Dates: start: 20100608, end: 20100608
  5. SEROQUEL [Suspect]
     Indication: BIPOLAR I DISORDER
     Route: 048
     Dates: start: 20090729, end: 20091203
  6. SEROQUEL [Suspect]
     Route: 048
     Dates: start: 20091204, end: 20100113
  7. SEROQUEL [Suspect]
     Route: 048
     Dates: start: 20100114, end: 20100204
  8. SEROQUEL [Suspect]
     Route: 048
     Dates: start: 20100205, end: 20100331
  9. SEROQUEL [Suspect]
     Route: 048
     Dates: start: 20100401, end: 20100503
  10. SEROQUEL [Suspect]
     Route: 048
     Dates: start: 20100504, end: 20100516
  11. SEROQUEL [Suspect]
     Route: 048
     Dates: start: 20100517, end: 20100619
  12. SEROQUEL [Suspect]
     Route: 048
     Dates: start: 20100620
  13. HALDOL-JANSSEN DECANOAT [Suspect]
     Indication: BIPOLAR I DISORDER
     Route: 030
     Dates: start: 20090826, end: 20091118
  14. HALDOL-JANSSEN DECANOAT [Suspect]
     Route: 030
     Dates: start: 20091119, end: 20091202
  15. HALDOL-JANSSEN DECANOAT [Suspect]
     Route: 030
     Dates: start: 20091203, end: 20100401
  16. DELIX PLUS [Concomitant]
     Indication: PRODUCT USED FOR UNKNOWN INDICATION
     Dates: start: 20090701

REACTIONS (6)
  - ACTIVITIES OF DAILY LIVING IMPAIRED [None]
  - APATHY [None]
  - ASTHENIA [None]
  - DRUG INEFFECTIVE [None]
  - HYPOKINESIA [None]
  - TREMOR [None]
